FAERS Safety Report 22948902 (Version 14)
Quarter: 2024Q2

REPORT INFORMATION
  Report Type: Report from Study
  Country: JP (occurrence: JP)
  Receive Date: 20230915
  Receipt Date: 20240416
  Transmission Date: 20240716
  Serious: Yes (Hospitalization, Other)
  Sender: FDA-Public Use
  Company Number: JP-ARGENX-2023-ARGX-JP001039

PATIENT

DRUGS (37)
  1. VYVGART [Suspect]
     Active Substance: EFGARTIGIMOD ALFA-FCAB
     Indication: Myasthenia gravis
     Dosage: 740 MG
     Route: 042
     Dates: start: 20220516, end: 20220606
  2. VYVGART [Suspect]
     Active Substance: EFGARTIGIMOD ALFA-FCAB
     Dosage: 740 MG
     Route: 042
     Dates: start: 20220829, end: 20220921
  3. VYVGART [Suspect]
     Active Substance: EFGARTIGIMOD ALFA-FCAB
     Dosage: 740 MG
     Route: 042
     Dates: start: 20230202, end: 20230222
  4. VYVGART [Suspect]
     Active Substance: EFGARTIGIMOD ALFA-FCAB
     Dosage: 740 MG
     Route: 042
     Dates: start: 20230606, end: 20230628
  5. VYVGART [Suspect]
     Active Substance: EFGARTIGIMOD ALFA-FCAB
     Dosage: 740 MG
     Route: 042
     Dates: start: 20231004, end: 20231025
  6. VYVGART [Suspect]
     Active Substance: EFGARTIGIMOD ALFA-FCAB
     Dosage: UNK
     Route: 042
     Dates: end: 20240116
  7. VYVGART [Suspect]
     Active Substance: EFGARTIGIMOD ALFA-FCAB
     Dosage: UNK
     Route: 042
     Dates: end: 20240124
  8. VYVGART [Suspect]
     Active Substance: EFGARTIGIMOD ALFA-FCAB
     Dosage: UNK
     Route: 042
     Dates: end: 20240131
  9. VYVGART [Suspect]
     Active Substance: EFGARTIGIMOD ALFA-FCAB
     Dosage: UNK
     Route: 042
     Dates: end: 20240306
  10. VYVGART [Suspect]
     Active Substance: EFGARTIGIMOD ALFA-FCAB
     Dosage: UNK
     Route: 042
     Dates: end: 20240313
  11. VYVGART [Suspect]
     Active Substance: EFGARTIGIMOD ALFA-FCAB
     Dosage: UNK
     Route: 042
     Dates: end: 20240327
  12. VYVGART [Suspect]
     Active Substance: EFGARTIGIMOD ALFA-FCAB
     Dosage: UNK
     Route: 042
     Dates: end: 20240403
  13. TACROLIMUS [Suspect]
     Active Substance: TACROLIMUS
     Indication: Myasthenia gravis
     Dosage: 3 MG
     Route: 048
  14. TACROLIMUS [Suspect]
     Active Substance: TACROLIMUS
     Dosage: 3 CAP
     Route: 048
  15. TACROLIMUS [Suspect]
     Active Substance: TACROLIMUS
     Dosage: 2 CAP
     Route: 048
  16. PREDNISOLONE [Concomitant]
     Active Substance: PREDNISOLONE
     Indication: Myasthenia gravis
     Dosage: 10 MG
     Route: 048
  17. CORTRIL [Concomitant]
     Active Substance: HYDROCORTISONE
     Indication: Hypopituitarism
     Dosage: UNK
     Route: 048
  18. BONALON [Concomitant]
     Active Substance: ALENDRONATE SODIUM
     Indication: Product used for unknown indication
     Dosage: UNK
     Route: 065
  19. HUMALOG [Concomitant]
     Active Substance: INSULIN LISPRO
     Indication: Product used for unknown indication
     Dosage: UNK
     Route: 041
  20. OZEMPIC [Concomitant]
     Active Substance: SEMAGLUTIDE
     Indication: Product used for unknown indication
     Dosage: UNK
     Route: 065
  21. VONOPRAZAN FUMARATE [Concomitant]
     Active Substance: VONOPRAZAN FUMARATE
     Indication: Product used for unknown indication
     Dosage: UNK
     Route: 065
  22. EZETIMIBE [Concomitant]
     Active Substance: EZETIMIBE
     Indication: Product used for unknown indication
     Dosage: UNK
     Route: 065
  23. JARDIANCE [Concomitant]
     Active Substance: EMPAGLIFLOZIN
     Indication: Product used for unknown indication
     Dosage: UNK
     Route: 065
  24. LEVOTHYROXINE [Concomitant]
     Active Substance: LEVOTHYROXINE\LEVOTHYROXINE SODIUM
     Indication: Product used for unknown indication
     Dosage: UNK
     Route: 065
  25. PROGRAF [Concomitant]
     Active Substance: TACROLIMUS
     Indication: Product used for unknown indication
     Dosage: UNK
     Route: 048
  26. MENOAID [Concomitant]
     Indication: Product used for unknown indication
     Dosage: UNK
     Route: 061
  27. LOXOPROFEN SODIUM [Concomitant]
     Active Substance: LOXOPROFEN SODIUM
     Indication: Product used for unknown indication
     Dosage: UNK
     Route: 065
  28. TRAMADOL [Concomitant]
     Active Substance: TRAMADOL\TRAMADOL HYDROCHLORIDE
     Indication: Product used for unknown indication
     Dosage: UNK
     Route: 065
  29. NAPHAZOLINE NITRATE [Concomitant]
     Active Substance: NAPHAZOLINE NITRATE
     Indication: Eyelid ptosis
     Dosage: UNK
     Route: 047
  30. DIQUAFOSOL TETRASODIUM [Concomitant]
     Active Substance: DIQUAFOSOL TETRASODIUM
     Indication: Product used for unknown indication
     Dosage: UNK
     Route: 047
  31. HYALURONATE SODIUM [Concomitant]
     Active Substance: HYALURONATE SODIUM
     Indication: Product used for unknown indication
     Dosage: UNK
     Route: 047
  32. SODIUM GUALENATE MONOHYDRATE [Concomitant]
     Active Substance: SODIUM GUALENATE MONOHYDRATE
     Indication: Product used for unknown indication
     Dosage: UNK
     Route: 050
  33. SALIVEHT [Concomitant]
     Indication: Product used for unknown indication
     Dosage: UNK
     Route: 065
  34. HERBESSER [Concomitant]
     Active Substance: DILTIAZEM HYDROCHLORIDE
     Indication: Product used for unknown indication
     Dosage: UNK
     Route: 048
  35. AZILSARTAN KAMEDOXOMIL [Concomitant]
     Active Substance: AZILSARTAN KAMEDOXOMIL
     Indication: Product used for unknown indication
     Dosage: UNK
     Route: 065
  36. NITROGLYCERIN [Concomitant]
     Active Substance: NITROGLYCERIN
     Indication: Product used for unknown indication
     Dosage: AT THE TIME OF SEIZURE
     Route: 065
  37. PREDONINE [Concomitant]
     Active Substance: PREDNISOLONE
     Indication: Hypopituitarism
     Dosage: UNK
     Route: 048

REACTIONS (79)
  - Adrenocortical insufficiency acute [Recovering/Resolving]
  - Myasthenia gravis [Unknown]
  - Choking [Unknown]
  - Physical deconditioning [Unknown]
  - Myasthenia gravis [Unknown]
  - Immune-mediated myositis [Unknown]
  - Staphylococcal infection [Unknown]
  - Infection [Recovering/Resolving]
  - COVID-19 [Unknown]
  - Interstitial lung disease [Unknown]
  - Haematemesis [Unknown]
  - Cortisol decreased [Unknown]
  - Blood albumin decreased [Unknown]
  - Protein total decreased [Unknown]
  - Cortisol decreased [Unknown]
  - Oxygen saturation decreased [Not Recovered/Not Resolved]
  - Eyelid ptosis [Recovering/Resolving]
  - Motor dysfunction [Not Recovered/Not Resolved]
  - Motor dysfunction [Not Recovered/Not Resolved]
  - Wheezing [Not Recovered/Not Resolved]
  - Fall [Unknown]
  - Immobile [Unknown]
  - Physical deconditioning [Unknown]
  - Condition aggravated [Unknown]
  - Muscular weakness [Unknown]
  - Aphasia [Recovering/Resolving]
  - Dysphagia [Unknown]
  - Muscular weakness [Unknown]
  - Respiratory muscle weakness [Unknown]
  - Mobility decreased [Unknown]
  - Arthralgia [Unknown]
  - Myalgia [Unknown]
  - Nausea [Recovered/Resolved]
  - Infection susceptibility increased [Unknown]
  - Dyspnoea [Recovering/Resolving]
  - Headache [Recovered/Resolved]
  - Muscular weakness [Unknown]
  - Hypersensitivity [Recovering/Resolving]
  - Diplopia [Unknown]
  - Symptom recurrence [Recovering/Resolving]
  - Symptom recurrence [Recovering/Resolving]
  - Symptom recurrence [Recovering/Resolving]
  - Symptom recurrence [Recovering/Resolving]
  - Muscular weakness [Unknown]
  - Loss of personal independence in daily activities [Unknown]
  - Loss of personal independence in daily activities [Unknown]
  - Dysphagia [Not Recovered/Not Resolved]
  - Muscular weakness [Unknown]
  - Eyelid ptosis [Unknown]
  - Night sweats [Unknown]
  - Vomiting [Unknown]
  - Hypercapnia [Unknown]
  - Muscular weakness [Recovering/Resolving]
  - Muscular weakness [Recovering/Resolving]
  - Lung diffusion disorder [Unknown]
  - Temporomandibular pain and dysfunction syndrome [Unknown]
  - Aspiration [Unknown]
  - Dyslalia [Unknown]
  - Dysphonia [Unknown]
  - Physical deconditioning [Unknown]
  - Sputum retention [Not Recovered/Not Resolved]
  - Loss of personal independence in daily activities [Not Recovered/Not Resolved]
  - Hypoglycaemia [Not Recovered/Not Resolved]
  - Nasopharyngitis [Unknown]
  - Sinusitis [Unknown]
  - Drug level increased [Unknown]
  - Dysphagia [Unknown]
  - Dysphonia [Unknown]
  - Musculoskeletal discomfort [Unknown]
  - KL-6 increased [Unknown]
  - Musculoskeletal discomfort [Unknown]
  - Dyspnoea [Unknown]
  - Language disorder [Unknown]
  - Product dose omission issue [Unknown]
  - Therapeutic product effect incomplete [Unknown]
  - Therapeutic response shortened [Unknown]
  - Therapeutic response unexpected [Unknown]
  - Intentional dose omission [Unknown]
  - Therapeutic response unexpected [Unknown]

NARRATIVE: CASE EVENT DATE: 20220629
